FAERS Safety Report 22142156 (Version 1)
Quarter: 2023Q1

REPORT INFORMATION
  Report Type: Spontaneous
  Country: JP (occurrence: None)
  Receive Date: 20230327
  Receipt Date: 20230327
  Transmission Date: 20230418
  Serious: Yes (Death)
  Sender: FDA-Public Use
  Company Number: 2023A069772

PATIENT
  Age: 88 Year
  Sex: Female

DRUGS (1)
  1. ONDEXXYA [Suspect]
     Active Substance: ANDEXANET ALFA
     Indication: Cerebral haemorrhage
     Dosage: INTRAVENOUS ADMINISTRATION OF 400 MG AT A RATE OF 30 MG/MIN., WITH SUBSEQUENT INTRAVENOUS ADMINIS...
     Route: 042

REACTIONS (1)
  - Death [Fatal]
